FAERS Safety Report 8811731 (Version 2)
Quarter: 2012Q4

REPORT INFORMATION
  Report Type: 
  Country: US (occurrence: US)
  Receive Date: 20120927
  Receipt Date: 20121024
  Transmission Date: 20130627
  Serious: Yes (Other)
  Sender: FDA-Public Use
  Company Number: US-BAYER-2012-099131

PATIENT
  Age: 42 Year
  Sex: Female
  Weight: 57.14 kg

DRUGS (3)
  1. MIRENA [Suspect]
     Indication: CONTRACEPTION
     Dosage: 20 mcg/24hr, CONT
     Route: 015
     Dates: start: 20120706, end: 20120920
  2. LIDOCAINE [Concomitant]
     Indication: ANALGESIA
     Dosage: 1 cc 2%
     Route: 015
  3. CYTOTEC [Concomitant]
     Indication: UTERINE CERVIX DILATION PROCEDURE

REACTIONS (5)
  - Genital haemorrhage [Recovered/Resolved with Sequelae]
  - Device dislocation [Recovered/Resolved with Sequelae]
  - Uterine perforation [Recovered/Resolved with Sequelae]
  - Pulmonary embolism [None]
  - Pelvic adhesions [None]
